FAERS Safety Report 6091051-2 (Version None)
Quarter: 2009Q1

REPORT INFORMATION
  Report Type: 
  Country: None (occurrence: None)
  Receive Date: 20090225
  Receipt Date: 20090216
  Transmission Date: 20090719
  Serious: Yes (Other)
  Sender: FDA-Public Use
  Company Number: DE-SOLVAY-00209000978

PATIENT
  Age: 67 Year
  Sex: Male

DRUGS (1)
  1. COVERSUM 4 MG [Suspect]
     Indication: HYPERTENSION
     Dosage: DAILY DOSE:  UNKNOWN
     Route: 048

REACTIONS (1)
  - POLYNEUROPATHY [None]
